FAERS Safety Report 5315731-9 (Version None)
Quarter: 2007Q2

REPORT INFORMATION
  Report Type: 
  Country: None (occurrence: None)
  Receive Date: 20070503
  Receipt Date: 20070306
  Transmission Date: 20071010
  Serious: Yes (Hospitalization)
  Sender: FDA-Public Use
  Company Number: NL-BAYER-200616132GDS

PATIENT
  Age: 54 Year
  Sex: Male
  Weight: 96 kg

DRUGS (13)
  1. SORAFENIB [Suspect]
     Indication: NON-SMALL CELL LUNG CANCER
     Dosage: TOTAL DAILY DOSE: 800 MG
     Route: 048
     Dates: start: 20061117
  2. CARBOPLATIN [Suspect]
     Indication: NON-SMALL CELL LUNG CANCER
     Route: 042
     Dates: start: 20061116, end: 20061116
  3. PACLITAXEL [Suspect]
     Indication: NON-SMALL CELL LUNG CANCER
     Route: 042
     Dates: start: 20061116, end: 20061116
  4. TRAMADOL HCL [Concomitant]
     Indication: BACK PAIN
     Route: 048
     Dates: start: 20060101
  5. FERROFUMARAT [Concomitant]
     Indication: ANAEMIA
     Route: 048
     Dates: start: 20060101
  6. METOCLOPRAMIDE [Concomitant]
     Indication: ABDOMINAL PAIN UPPER
     Route: 048
     Dates: start: 20040101
  7. TEMAZEPAM [Concomitant]
     Indication: SLEEP DISORDER
     Route: 048
     Dates: start: 20060101, end: 20060101
  8. METOPROLOL SUCCINATE [Concomitant]
     Indication: AORTIC ANEURYSM
     Route: 048
     Dates: start: 20031001
  9. CARBASALATE CALCIUM [Concomitant]
     Indication: AORTIC ANEURYSM
     Route: 048
     Dates: start: 20031001
  10. AUGMENTIN '125' [Concomitant]
     Indication: BACK PAIN
     Route: 048
     Dates: start: 20060101, end: 20060101
  11. LIPITOR [Concomitant]
     Indication: HYPERCHOLESTEROLAEMIA
     Route: 048
     Dates: start: 20031001, end: 20031001
  12. LISINOPRIL [Concomitant]
     Indication: AORTIC ANEURYSM
     Route: 048
     Dates: start: 20031001, end: 20031001
  13. DICLOFENAC [Concomitant]
     Indication: BACK PAIN
     Route: 048
     Dates: start: 20060101

REACTIONS (2)
  - CONFUSIONAL STATE [None]
  - DYSPNOEA [None]
